FAERS Safety Report 17210530 (Version 1)
Quarter: 2019Q4

REPORT INFORMATION
  Report Type: Report from Study
  Country: BD (occurrence: BD)
  Receive Date: 20191227
  Receipt Date: 20191227
  Transmission Date: 20200122
  Serious: Yes (Death, Hospitalization)
  Sender: FDA-Public Use
  Company Number: PHHY2019BD216765

PATIENT
  Age: 28 Year
  Sex: Male
  Weight: 50 kg

DRUGS (1)
  1. SANDIMMUN NEORAL [Suspect]
     Active Substance: CYCLOSPORINE
     Indication: NEPHROPATHY
     Dosage: 25 MG, BID
     Route: 048
     Dates: end: 201910

REACTIONS (8)
  - Malaise [Unknown]
  - Oedema peripheral [Unknown]
  - Renal failure [Fatal]
  - Face oedema [Unknown]
  - Nephropathy [Unknown]
  - Vomiting [Unknown]
  - Disease progression [Unknown]
  - Dyspnoea [Unknown]

NARRATIVE: CASE EVENT DATE: 20191218
